FAERS Safety Report 7131747-4 (Version None)
Quarter: 2010Q4

REPORT INFORMATION
  Report Type: 
  Country: None (occurrence: None)
  Receive Date: 20101202
  Receipt Date: 20101122
  Transmission Date: 20110411
  Serious: Yes (Hospitalization)
  Sender: FDA-Public Use
  Company Number: CA-BIOGENIDEC-2010BI029862

PATIENT
  Age: 45 Year
  Sex: Male

DRUGS (1)
  1. TYSABRI [Suspect]
     Indication: MULTIPLE SCLEROSIS
     Route: 042
     Dates: start: 20100312, end: 20100923

REACTIONS (3)
  - ABDOMINAL HERNIA OBSTRUCTIVE [None]
  - FEMORAL HERNIA [None]
  - INGUINAL HERNIA, OBSTRUCTIVE [None]
